FAERS Safety Report 19278208 (Version 1)
Quarter: 2021Q2

REPORT INFORMATION
  Report Type: Report from Study
  Country: CN (occurrence: CN)
  Receive Date: 20210520
  Receipt Date: 20210520
  Transmission Date: 20210717
  Serious: Yes (Hospitalization)
  Sender: FDA-Public Use
  Company Number: CN-ROCHE-2285466

PATIENT
  Age: 3 Year
  Sex: Male
  Weight: 27 kg

DRUGS (2)
  1. RISDIPLAM. [Suspect]
     Active Substance: RISDIPLAM
     Indication: SPINAL MUSCULAR ATROPHY
     Route: 048
  2. BLINDED RISDIPLAM [Suspect]
     Active Substance: RISDIPLAM
     Indication: SPINAL MUSCULAR ATROPHY
     Dosage: MOST RECENT DOSE PRIOR TO SAE 10/MAR/2019?MOST RECENT DOSE PRIOR TO SAE ONSET: 01/NOV/2020
     Route: 048
     Dates: start: 20180720

REACTIONS (4)
  - Asthma [Recovered/Resolved]
  - Pneumonia [Recovered/Resolved]
  - Pneumonia mycoplasmal [Recovered/Resolved]
  - Pneumonia [Recovered/Resolved]

NARRATIVE: CASE EVENT DATE: 20181101
